FAERS Safety Report 8378860-1 (Version None)
Quarter: 2012Q2

REPORT INFORMATION
  Report Type: 
  Country: None (occurrence: None)
  Receive Date: 20120523
  Receipt Date: 20120512
  Transmission Date: 20120825
  Serious: Yes (Other)
  Sender: FDA-Public Use
  Company Number: US-PAR PHARMACEUTICAL, INC-2012SCPR004381

PATIENT

DRUGS (1)
  1. RANITIDINE [Suspect]
     Indication: GASTROOESOPHAGEAL REFLUX DISEASE
     Dosage: 15 MG/ML, (1.5 TEASPONS OF ELIXIR) TWICE DAILY
     Route: 048

REACTIONS (2)
  - NEUROTOXICITY [None]
  - OVERDOSE [None]
